FAERS Safety Report 8788728 (Version 2)
Quarter: 2012Q4

REPORT INFORMATION
  Report Type: 
  Country: CO (occurrence: CO)
  Receive Date: 20120917
  Receipt Date: 20121107
  Transmission Date: 20130627
  Serious: Yes (Hospitalization)
  Sender: FDA-Public Use
  Company Number: CO-AMGEN-COLSP2012057253

PATIENT
  Age: 46 Year
  Sex: Female

DRUGS (4)
  1. ENBREL [Suspect]
     Indication: RHEUMATOID ARTHRITIS
     Dosage: 50 mg, weekly
     Route: 058
     Dates: start: 2009
  2. METHOTREXATE [Concomitant]
     Indication: RHEUMATOID ARTHRITIS
     Dosage: 2.5 mg, three times per day orally Saturdays and Sundays
     Route: 048
     Dates: start: 2002
  3. PREDNISOLONE [Concomitant]
     Dosage: 50 mg, 1x/day
     Dates: start: 2002
  4. FOLIC ACID [Concomitant]
     Dosage: UNK, 1x/day
     Dates: start: 2002

REACTIONS (1)
  - Thrombophlebitis [Not Recovered/Not Resolved]
